FAERS Safety Report 6955083-1 (Version None)
Quarter: 2010Q3

REPORT INFORMATION
  Report Type: 
  Country: None (occurrence: None)
  Receive Date: 20100830
  Receipt Date: 20100818
  Transmission Date: 20110219
  Serious: Yes (Other)
  Sender: FDA-Public Use
  Company Number: CA-NOVOPROD-312703

PATIENT
  Sex: Male
  Weight: 126.98 kg

DRUGS (9)
  1. VICTOZA [Suspect]
     Indication: TYPE 2 DIABETES MELLITUS
     Dosage: 1.2 MG DAILY
     Dates: start: 20100614
  2. ATACAND HCT [Suspect]
     Dosage: 32MG/25MG ORALLY DAILY
  3. AMLODIPINE [Concomitant]
     Dosage: 5MG ORALLY DAILY
  4. GLUCOPHAGE [Concomitant]
     Dosage: 1G ORALLY TWICE DAILY
  5. ACEBUTOLOL [Concomitant]
     Dosage: 100MG ORALLY TWICE DAILY
  6. ASPIRIN [Concomitant]
     Dosage: 80MG ORALLY DAILY
  7. SYNTHROID [Concomitant]
     Dosage: 0.125MG ORALLY DAILY
  8. CRESTOR [Concomitant]
     Dosage: 10MG ORALLY DAILY
  9. XATRAL                             /00975301/ [Concomitant]
     Dosage: 10MG ORALLY DAILY

REACTIONS (2)
  - ABDOMINAL PAIN [None]
  - GOUT [None]
